FAERS Safety Report 14457752 (Version 2)
Quarter: 2018Q2

REPORT INFORMATION
  Report Type: Spontaneous
  Country: US (occurrence: US)
  Receive Date: 20180130
  Receipt Date: 20180517
  Transmission Date: 20180711
  Serious: Yes (Other)
  Sender: FDA-Public Use
  Company Number: US-BRISTOL-MYERS SQUIBB COMPANY-BMS-2018-004712

PATIENT
  Sex: Male

DRUGS (1)
  1. ORENCIA [Suspect]
     Active Substance: ABATACEPT
     Indication: BURSITIS
     Dosage: 125 MG, QWK
     Route: 058
     Dates: start: 20171019

REACTIONS (3)
  - Product use in unapproved indication [Unknown]
  - Rash [Unknown]
  - Adverse event [Unknown]
